FAERS Safety Report 6338020-2 (Version None)
Quarter: 2009Q3

REPORT INFORMATION
  Report Type: 
  Country: None (occurrence: None)
  Receive Date: 20090902
  Receipt Date: 20090820
  Transmission Date: 20100115
  Serious: Yes (Other)
  Sender: FDA-Public Use
  Company Number: CH-PFIZER INC-2009257175

PATIENT
  Age: 71 Year

DRUGS (1)
  1. VIAGRA [Suspect]
     Indication: PENIS DISORDER
     Dosage: 50 MG, UNK
     Route: 048
     Dates: end: 20090609

REACTIONS (3)
  - AMNESIA [None]
  - CONFUSIONAL STATE [None]
  - DISORIENTATION [None]
